FAERS Safety Report 7863379-4 (Version None)
Quarter: 2011Q4

REPORT INFORMATION
  Report Type: 
  Country: None (occurrence: None)
  Receive Date: 20111027
  Receipt Date: 20101202
  Transmission Date: 20120403
  Serious: No
  Sender: FDA-Public Use
  Company Number: US-AMGEN-USASP2010005006

PATIENT
  Age: 58 Year
  Sex: Female

DRUGS (1)
  1. ENBREL [Suspect]
     Indication: RHEUMATOID ARTHRITIS
     Dosage: 50 MG, QWK
     Dates: start: 20101104

REACTIONS (8)
  - NAUSEA [None]
  - VULVOVAGINAL PRURITUS [None]
  - INJECTION SITE PAIN [None]
  - EAR PAIN [None]
  - VULVOVAGINAL BURNING SENSATION [None]
  - HEADACHE [None]
  - RHINORRHOEA [None]
  - OROPHARYNGEAL PAIN [None]
